FAERS Safety Report 9853760 (Version 1)
Quarter: 2014Q1

REPORT INFORMATION
  Report Type: Spontaneous
  Country: US (occurrence: US)
  Receive Date: 20140129
  Receipt Date: 20140129
  Transmission Date: 20141002
  Serious: No
  Sender: FDA-Public Use
  Company Number: US-GLAXOSMITHKLINE-A1024554A

PATIENT
  Age: 58 Year
  Sex: Female

DRUGS (2)
  1. WELLBUTRIN [Suspect]
     Indication: BLOOD INSULIN INCREASED
     Dosage: 75MG PER DAY
     Route: 048
     Dates: start: 20130515, end: 20130519
  2. LEVOXYL [Concomitant]

REACTIONS (2)
  - Feeling abnormal [Recovered/Resolved]
  - Sensory disturbance [Unknown]
